FAERS Safety Report 8947152 (Version 2)
Quarter: 2015Q2

REPORT INFORMATION
  Report Type: Report from Study
  Country: FR (occurrence: FR)
  Receive Date: 20121205
  Receipt Date: 20150508
  Transmission Date: 20150821
  Serious: Yes (Death, Hospitalization, Other)
  Sender: FDA-Public Use
  Company Number: FR-ROCHE-1164163

PATIENT
  Age: 63 Year
  Sex: Male

DRUGS (12)
  1. CORTANCYL [Concomitant]
     Active Substance: PREDNISONE
     Route: 065
  2. LEFLUNOMIDE. [Concomitant]
     Active Substance: LEFLUNOMIDE
     Route: 065
  3. CORTANCYL [Concomitant]
     Active Substance: PREDNISONE
     Dosage: FOR FIRST INFUSION OF RITUXIMAB
     Route: 065
  4. RITUXIMAB [Suspect]
     Active Substance: RITUXIMAB
     Indication: RHEUMATOID ARTHRITIS
     Dosage: D1
     Route: 065
     Dates: start: 20070619
  5. RITUXIMAB [Suspect]
     Active Substance: RITUXIMAB
     Dosage: D1
     Route: 065
     Dates: start: 20080222
  6. RITUXIMAB [Suspect]
     Active Substance: RITUXIMAB
     Dosage: D15
     Route: 065
     Dates: start: 20080307
  7. CORTANCYL [Concomitant]
     Active Substance: PREDNISONE
     Route: 065
  8. CORTANCYL [Concomitant]
     Active Substance: PREDNISONE
     Dosage: FOR SECOND INFUSION OF RITUXIMAB
     Route: 065
  9. RITUXIMAB [Suspect]
     Active Substance: RITUXIMAB
     Route: 065
     Dates: start: 20100312
  10. RITUXIMAB [Suspect]
     Active Substance: RITUXIMAB
     Dosage: D1
     Route: 065
     Dates: start: 20090129
  11. RITUXIMAB [Suspect]
     Active Substance: RITUXIMAB
     Dosage: D15
     Route: 065
     Dates: start: 20070704
  12. RITUXIMAB [Suspect]
     Active Substance: RITUXIMAB
     Dosage: D15
     Route: 065
     Dates: start: 20090212

REACTIONS (15)
  - Sudden death [Fatal]
  - Pneumonia bacterial [Recovered/Resolved]
  - Dyspnoea [Recovered/Resolved]
  - General physical health deterioration [Recovered/Resolved]
  - Infection [Recovered/Resolved]
  - Pneumonia [Unknown]
  - Oedema peripheral [Recovered/Resolved]
  - Lung infection [Recovered/Resolved]
  - Asthenia [Unknown]
  - Oedema peripheral [Recovering/Resolving]
  - Osteitis [Recovered/Resolved]
  - Respiratory failure [Recovered/Resolved]
  - Bronchopneumonia [Recovered/Resolved]
  - Bronchopneumonia [Unknown]
  - Bronchopneumonia [Recovered/Resolved]

NARRATIVE: CASE EVENT DATE: 20070820
